FAERS Safety Report 4633534-5 (Version None)
Quarter: 2005Q2

REPORT INFORMATION
  Report Type: 
  Country: None (occurrence: None)
  Receive Date: 20050331
  Receipt Date: 20041119
  Transmission Date: 20051028
  Serious: Yes (Other)
  Sender: FDA-Public Use
  Company Number: 200415637BCC

PATIENT
  Age: 76 Year
  Sex: Male
  Weight: 88.4514 kg

DRUGS (12)
  1. ALEVE (CAPLET) [Suspect]
     Indication: ARTHRALGIA
     Dosage: 220 MG, BID, ORAL
     Route: 048
     Dates: start: 20041105, end: 20041119
  2. LOTENSIN [Concomitant]
  3. FLOMAX [Concomitant]
  4. FISH OIL [Concomitant]
  5. SAW PALMETTO [Concomitant]
  6. UNICAP T [Concomitant]
  7. VITAMIN B6 [Concomitant]
  8. LYCOPENE [Concomitant]
  9. GARLIC [Concomitant]
  10. POTASSIUM CHLORIDE [Concomitant]
  11. IRON [Concomitant]
  12. SELENIUM SULFIDE [Concomitant]

REACTIONS (1)
  - HAEMATOCHEZIA [None]
